FAERS Safety Report 8525234-6 (Version None)
Quarter: 2012Q3

REPORT INFORMATION
  Report Type: 
  Country: None (occurrence: None)
  Receive Date: 20120720
  Receipt Date: 20120716
  Transmission Date: 20120928
  Serious: Yes (Hospitalization)
  Sender: FDA-Public Use
  Company Number: PHHY2012FR061857

PATIENT
  Sex: Female

DRUGS (3)
  1. ZOMETA [Suspect]
     Dosage: 4 MG/5 ML
     Dates: start: 20111001, end: 20120301
  2. AVASTIN [Suspect]
     Dosage: 25 MG/ML
     Dates: start: 20111001, end: 20120301
  3. TAXOL [Suspect]
     Dates: start: 20111001, end: 20120301

REACTIONS (1)
  - CHOLESTASIS [None]
